FAERS Safety Report 8312648-2 (Version None)
Quarter: 2012Q2

REPORT INFORMATION
  Report Type: 
  Country: None (occurrence: None)
  Receive Date: 20120424
  Receipt Date: 20120409
  Transmission Date: 20120825
  Serious: Yes (Hospitalization)
  Sender: FDA-Public Use
  Company Number: A0973909A

PATIENT
  Sex: Male

DRUGS (9)
  1. NARIDRIN NASAL SPRAY (NARIDRIN) [Suspect]
     Indication: PRODUCT USED FOR UNKNOWN INDICATION
     Dosage: 1 SPRAY / AS REQUIRED / EACH NOSTRIL/
  2. ALBUTEROL SULFATE [Suspect]
     Indication: BRONCHIECTASIS
     Dosage: FOUR TIMES PER DAY / NEUBULI
  3. AZITHROMYCIN [Suspect]
     Indication: PRODUCT USED FOR UNKNOWN INDICATION
     Dosage: 1 TABLET / TWO TIMES PER WEEK / UNKNOW
     Dates: start: 20110801
  4. SPIRONOLACTONE [Suspect]
     Indication: PRODUCT USED FOR UNKNOWN INDICATION
     Dosage: 1 TABLET PER DAY/ UNKNOWN
  5. FLUTICASONE-SALMETEROL MULTI DOSE POWDER INHALER (FLURICASONE+SALMETER [Suspect]
     Indication: PRODUCT USED FOR UNKNOWN INDICATION
     Dosage: 1 PUFF(S) TWICE PER DAY / UNKNOWN
  6. TIOTROPIUM (FORMULATION UNKNOWN) (TIOTROPIUM) [Suspect]
     Indication: PRODUCT USED FOR UNKNOWN INDICATION
     Dosage: 2 PUFF (S) / PER DAY / INHALED
     Route: 055
  7. DIGOXIN [Suspect]
     Indication: PRODUCT USED FOR UNKNOWN INDICATION
     Dosage: 1 TABLET / WEEKLY / UNKNOWN
  8. OMEPRAZOLE [Suspect]
     Indication: PRODUCT USED FOR UNKNOWN INDICATION
     Dosage: 1 TABLET / PER DAY/ UNKNOWN
  9. SYNFLORIX [Concomitant]

REACTIONS (3)
  - PNEUMONIA [None]
  - DRUG INEFFECTIVE [None]
  - PRODUCT QUALITY ISSUE [None]
